FAERS Safety Report 6538560-7 (Version None)
Quarter: 2010Q1

REPORT INFORMATION
  Report Type: 
  Country: None (occurrence: None)
  Receive Date: 20100113
  Receipt Date: 20100113
  Transmission Date: 20100710
  Serious: Yes (Hospitalization, Disabling, Other)
  Sender: FDA-Public Use
  Company Number: None

PATIENT
  Age: 69 Year
  Sex: Female
  Weight: 58.0604 kg

DRUGS (1)
  1. FLECAINIDE ACETATE [Suspect]
     Indication: ATRIAL TACHYCARDIA
     Dosage: 1 50 MG 2 X A DAY PO
     Route: 048
     Dates: start: 20091118, end: 20100104

REACTIONS (5)
  - ASTHENIA [None]
  - DIZZINESS [None]
  - NAUSEA [None]
  - RETINAL HAEMORRHAGE [None]
  - RETINAL VEIN OCCLUSION [None]
